FAERS Safety Report 5532504-2 (Version None)
Quarter: 2007Q4

REPORT INFORMATION
  Report Type: 
  Country: None (occurrence: None)
  Receive Date: 20071203
  Receipt Date: 20071121
  Transmission Date: 20080405
  Serious: Yes (Other)
  Sender: FDA-Public Use
  Company Number: US-PFIZER INC-2007098859

PATIENT
  Sex: Female
  Weight: 81.818 kg

DRUGS (2)
  1. DILANTIN [Suspect]
     Indication: GRAND MAL CONVULSION
  2. PHENYTOIN SUSPENSION [Suspect]
     Indication: GRAND MAL CONVULSION

REACTIONS (6)
  - ANTICONVULSANT DRUG LEVEL DECREASED [None]
  - APATHY [None]
  - DIZZINESS [None]
  - HYPERSOMNIA [None]
  - INCORRECT DOSE ADMINISTERED [None]
  - LOSS OF CONSCIOUSNESS [None]
